FAERS Safety Report 5137104-4 (Version None)
Quarter: 2006Q4

REPORT INFORMATION
  Report Type: 
  Country: None (occurrence: None)
  Receive Date: 20061030
  Receipt Date: 20060726
  Transmission Date: 20070319
  Serious: No
  Sender: FDA-Public Use
  Company Number: US-AMGEN-US187745

PATIENT

DRUGS (1)
  1. KEPIVANCE [Suspect]
     Indication: STOMATITIS
     Route: 065

REACTIONS (1)
  - RASH [None]
